FAERS Safety Report 5672937-7 (Version None)
Quarter: 2008Q1

REPORT INFORMATION
  Report Type: 
  Country: None (occurrence: None)
  Receive Date: 20080317
  Receipt Date: 20080227
  Transmission Date: 20080703
  Serious: Yes (Other)
  Sender: FDA-Public Use
  Company Number: JP_051007763

PATIENT
  Age: 55 Year
  Sex: Male

DRUGS (4)
  1. ZYPREXA [Suspect]
     Indication: SCHIZOPHRENIA
     Dosage: 30 MG, DAILY (1/D), ORAL
     Route: 048
     Dates: start: 20050713, end: 20050801
  2. ZOTEPINE (ZOTEPINE) [Concomitant]
  3. RISPERDAL [Concomitant]
  4. LIMAS (LITHIUM CARBONATE) [Concomitant]

REACTIONS (5)
  - DEEP VEIN THROMBOSIS [None]
  - DEHYDRATION [None]
  - HYPOKINESIA [None]
  - OVERDOSE [None]
  - SEDATION [None]
